FAERS Safety Report 14247086 (Version 1)
Quarter: 2017Q4

REPORT INFORMATION
  Report Type: Spontaneous
  Country: KR (occurrence: KR)
  Receive Date: 20171204
  Receipt Date: 20171204
  Transmission Date: 20180321
  Serious: Yes (Death)
  Sender: FDA-Public Use
  Company Number: KR-HQ SPECIALTY-KR-2017INT000396

PATIENT

DRUGS (1)
  1. PACLITAXEL. [Suspect]
     Active Substance: PACLITAXEL
     Indication: SMALL CELL LUNG CANCER
     Dosage: 175MG/M2 DISSOLVED IN 500ML SOLUTION
     Route: 042

REACTIONS (1)
  - Pneumonitis [Fatal]
